FAERS Safety Report 6039278-X (Version None)
Quarter: 2009Q1

REPORT INFORMATION
  Report Type: 
  Country: None (occurrence: None)
  Receive Date: 20090115
  Receipt Date: 20090113
  Transmission Date: 20090719
  Serious: Yes (Death, Other)
  Sender: FDA-Public Use
  Company Number: PHHY2009CA01109

PATIENT
  Sex: Male

DRUGS (3)
  1. DIOVAN [Suspect]
     Indication: CORONARY ARTERY DISEASE
     Dosage: 80 MG, UNK
  2. PREDNISONE TAB [Concomitant]
     Dosage: 15 MG, QD
     Dates: start: 20080310
  3. CORTICOSTEROID NOS [Concomitant]

REACTIONS (16)
  - ABDOMINAL PAIN [None]
  - CARBON MONOXIDE DIFFUSING CAPACITY DECREASED [None]
  - CHEST PAIN [None]
  - COUGH [None]
  - DIARRHOEA [None]
  - DRUG INEFFECTIVE [None]
  - DYSPNOEA [None]
  - FORCED EXPIRATORY VOLUME DECREASED [None]
  - HYPERTENSION [None]
  - MICROALBUMINURIA [None]
  - OXYGEN SATURATION DECREASED [None]
  - PULMONARY FIBROSIS [None]
  - RALES [None]
  - RESPIRATORY TRACT INFECTION [None]
  - TOTAL LUNG CAPACITY DECREASED [None]
  - VITAL CAPACITY DECREASED [None]
